FAERS Safety Report 7556427-2 (Version None)
Quarter: 2011Q2

REPORT INFORMATION
  Report Type: 
  Country: None (occurrence: None)
  Receive Date: 20110620
  Receipt Date: 20110610
  Transmission Date: 20111010
  Serious: Yes (Other)
  Sender: FDA-Public Use
  Company Number: GR-ASTELLAS-2011EU003800

PATIENT
  Age: 44 Year
  Sex: Female

DRUGS (2)
  1. VESICARE [Suspect]
     Indication: HYPERTONIC BLADDER
     Dosage: UNK
     Route: 065
  2. VESICARE [Suspect]
     Indication: MICTURITION URGENCY

REACTIONS (2)
  - PARALYSIS [None]
  - HYPOTONIA [None]
